FAERS Safety Report 6864525-1 (Version None)
Quarter: 2010Q3

REPORT INFORMATION
  Report Type: 
  Country: None (occurrence: None)
  Receive Date: 20100721
  Receipt Date: 20080530
  Transmission Date: 20110219
  Serious: No
  Sender: FDA-Public Use
  Company Number: US-PFIZER INC-2008028677

PATIENT
  Sex: Male
  Weight: 65.77 kg

DRUGS (3)
  1. CHANTIX [Suspect]
     Indication: SMOKING CESSATION THERAPY
     Dates: start: 20080301
  2. CRESTOR [Concomitant]
  3. LIPITOR [Concomitant]

REACTIONS (3)
  - APATHY [None]
  - FATIGUE [None]
  - SOMNOLENCE [None]
